FAERS Safety Report 5366930-1 (Version None)
Quarter: 2007Q2

REPORT INFORMATION
  Report Type: 
  Country: None (occurrence: None)
  Receive Date: 20070622
  Receipt Date: 20070220
  Transmission Date: 20071010
  Serious: No
  Sender: FDA-Public Use
  Company Number: US-ASTRAZENECA-2007UW03268

PATIENT
  Age: 16 Year
  Sex: Female
  Weight: 52.2 kg

DRUGS (2)
  1. RHINOCORT [Suspect]
     Indication: MULTIPLE ALLERGIES
     Route: 045
  2. VITAMIN E [Concomitant]

REACTIONS (1)
  - HEART RATE INCREASED [None]
